FAERS Safety Report 9311553 (Version 1)
Quarter: 2013Q2

REPORT INFORMATION
  Report Type: Spontaneous
  Country: US (occurrence: US)
  Receive Date: 20130528
  Receipt Date: 20130528
  Transmission Date: 20140414
  Serious: Yes (Hospitalization)
  Sender: FDA-Public Use
  Company Number: US-BAXTER-2013BAX016243

PATIENT
  Sex: Male

DRUGS (1)
  1. DIANEAL LOW CALCIUM [Suspect]
     Indication: PERITONEAL DIALYSIS
     Route: 033

REACTIONS (5)
  - Asthenia [Recovering/Resolving]
  - Pneumonia [Recovering/Resolving]
  - Dehydration [Recovering/Resolving]
  - Hypophagia [Unknown]
  - Fluid intake reduced [Unknown]
